FAERS Safety Report 8535224-5 (Version None)
Quarter: 2012Q3

REPORT INFORMATION
  Report Type: 
  Country: None (occurrence: None)
  Receive Date: 20120724
  Receipt Date: 20120720
  Transmission Date: 20120928
  Serious: Yes (Hospitalization)
  Sender: FDA-Public Use
  Company Number: US-AMGEN-USASP2012045330

PATIENT
  Sex: Female

DRUGS (8)
  1. CALCIUM PLUS VITAMIN D [Concomitant]
  2. MELOXICAM [Concomitant]
     Dosage: UNK
  3. PROLIA [Suspect]
     Indication: OSTEOPOROSIS POSTMENOPAUSAL
     Dosage: UNK
     Dates: start: 20120706
  4. ALEVE [Concomitant]
     Dosage: UNK
  5. COD LIVER OIL [Concomitant]
  6. ASPIRIN [Concomitant]
     Dosage: UNK
  7. DULCOLAX [Concomitant]
  8. VITAMIN B12                        /00056201/ [Concomitant]

REACTIONS (2)
  - ANGINA PECTORIS [None]
  - CYSTITIS [None]
